FAERS Safety Report 9403667 (Version 3)
Quarter: 2013Q3

REPORT INFORMATION
  Report Type: Spontaneous
  Country: JP (occurrence: JP)
  Receive Date: 20130717
  Receipt Date: 20130814
  Transmission Date: 20140515
  Serious: Yes (Hospitalization)
  Sender: FDA-Public Use
  Company Number: JP-009507513-1307JPN007015

PATIENT
  Age: 68 Year
  Sex: Female
  Weight: 58 kg

DRUGS (2)
  1. JANUVIA TABLETS 50MG [Suspect]
     Indication: DIABETES MELLITUS
     Dosage: 50 MG, 1 A DAY
     Route: 048
     Dates: start: 20130625, end: 20130626
  2. BAKTAR [Suspect]
     Indication: ARTHRITIS INFECTIVE
     Dosage: 2 DF, 1 DAY
     Route: 048
     Dates: start: 20130601, end: 20130626

REACTIONS (2)
  - Drug eruption [Recovered/Resolved]
  - Pyrexia [Recovered/Resolved]
